FAERS Safety Report 8646536 (Version 2)
Quarter: 2012Q4

REPORT INFORMATION
  Report Type: 
  Country: DK (occurrence: FI)
  Receive Date: 20120702
  Receipt Date: 20120831
  Transmission Date: 20130627
  Serious: Yes (Hospitalization)
  Sender: FDA-Public Use
  Company Number: FI-FRI-1000036744

PATIENT
  Sex: Female

DRUGS (7)
  1. ESCITALOPRAM [Suspect]
     Indication: DEPRESSION
     Dosage: 10 mg
     Route: 048
     Dates: start: 20120509, end: 20120515
  2. ESCITALOPRAM [Suspect]
     Dosage: 5 mg
     Route: 048
     Dates: start: 20120619, end: 201206
  3. ESCITALOPRAM [Suspect]
     Dosage: 10 mg
     Route: 048
     Dates: start: 201206, end: 20120724
  4. ATACAND [Suspect]
     Indication: HYPERTENSION
     Dosage: 8 mg
     Route: 048
     Dates: start: 2007
  5. ACICLOVIR [Concomitant]
     Indication: HERPES SIMPLEX
     Route: 048
     Dates: start: 20120310
  6. PROGYNOVA [Concomitant]
     Indication: ENDOMETRIOSIS
     Route: 048
  7. NEXIUM [Concomitant]
     Indication: GASTROINTESTINAL DISORDER
     Route: 048

REACTIONS (4)
  - Nausea [Recovered/Resolved]
  - Vertigo [Recovered/Resolved]
  - Deafness unilateral [Recovered/Resolved]
  - Vertigo positional [Recovered/Resolved]
